FAERS Safety Report 4907388-3 (Version None)
Quarter: 2006Q1

REPORT INFORMATION
  Report Type: 
  Country: None (occurrence: None)
  Receive Date: 20060208
  Receipt Date: 20060124
  Transmission Date: 20060701
  Serious: Yes (Hospitalization)
  Sender: FDA-Public Use
  Company Number: DSK-2005-12115

PATIENT
  Age: 52 Year
  Sex: Female

DRUGS (8)
  1. EVOXAC [Suspect]
     Indication: SJOGREN'S SYNDROME
     Dosage: 30 MG (30 MG 1 IN 1 D)
     Route: 048
     Dates: start: 20020527, end: 20020610
  2. URSO 250 [Concomitant]
  3. LIVACT                      (AMINO ACIDS NOS) [Concomitant]
  4. MAGNESIUM OXIDE               (MAGNESIUM OXIDE) [Concomitant]
  5. JUVELA-N                       (TOCOPHEROL NICTOINATE) [Concomitant]
  6. FAMOTIDINE [Concomitant]
  7. TORSEMIDE [Concomitant]
  8. METHYLCOBAL                     (MECOBALAMIN) [Concomitant]

REACTIONS (2)
  - CONTUSION [None]
  - ROAD TRAFFIC ACCIDENT [None]
